FAERS Safety Report 14145962 (Version 2)
Quarter: 2017Q4

REPORT INFORMATION
  Report Type: Spontaneous
  Country: US (occurrence: US)
  Receive Date: 20171031
  Receipt Date: 20171116
  Transmission Date: 20180321
  Serious: No
  Sender: FDA-Public Use
  Company Number: US-LUNDBECK-DKLU2038117

PATIENT
  Age: 6 Month
  Sex: Male

DRUGS (2)
  1. SABRIL [Suspect]
     Active Substance: VIGABATRIN
     Indication: INFANTILE SPASMS
     Route: 048
     Dates: start: 20170926
  2. SABRIL [Suspect]
     Active Substance: VIGABATRIN
     Indication: TUBEROUS SCLEROSIS
     Route: 048
     Dates: start: 20170926

REACTIONS (5)
  - Psychomotor hyperactivity [Unknown]
  - Drug dose omission [Unknown]
  - Somnolence [Unknown]
  - Infantile spitting up [Unknown]
  - Tremor [Unknown]

NARRATIVE: CASE EVENT DATE: 201709
